FAERS Safety Report 4487404-6 (Version None)
Quarter: 2004Q4

REPORT INFORMATION
  Report Type: 
  Country: None (occurrence: None)
  Receive Date: 20041027
  Receipt Date: 20041021
  Transmission Date: 20050328
  Serious: Yes (Death)
  Sender: FDA-Public Use
  Company Number: US-MERCK-0410USA03377

PATIENT
  Age: 40 Year
  Sex: Male

DRUGS (1)
  1. VIOXX [Suspect]
     Indication: RHEUMATOID ARTHRITIS
     Route: 048

REACTIONS (2)
  - DEATH [None]
  - MYOCARDIAL INFARCTION [None]
